FAERS Safety Report 13308799 (Version 1)
Quarter: 2017Q1

REPORT INFORMATION
  Report Type: Spontaneous
  Country: US (occurrence: US)
  Receive Date: 20170308
  Receipt Date: 20170308
  Transmission Date: 20170428
  Serious: Yes (Other)
  Sender: FDA-Public Use
  Company Number: None

PATIENT
  Age: 52 Year
  Sex: Female
  Weight: 79.65 kg

DRUGS (7)
  1. XARELTO [Suspect]
     Active Substance: RIVAROXABAN
     Indication: DEEP VEIN THROMBOSIS
     Route: 048
     Dates: start: 20160110, end: 20160510
  2. 2BEET PILLS [Concomitant]
  3. BROMALAIN [Concomitant]
  4. TURMERIC [Concomitant]
     Active Substance: TURMERIC
  5. FISH OIL [Concomitant]
     Active Substance: FISH OIL
  6. VITAMIN E [Concomitant]
     Active Substance: .ALPHA.-TOCOPHEROL
  7. GARLIC PILLS [Concomitant]

REACTIONS (4)
  - Weight increased [None]
  - Fatigue [None]
  - Abdominal distension [None]
  - Fluid retention [None]

NARRATIVE: CASE EVENT DATE: 20160110
